FAERS Safety Report 7205799-7 (Version None)
Quarter: 2010Q4

REPORT INFORMATION
  Report Type: 
  Country: None (occurrence: None)
  Receive Date: 20101231
  Receipt Date: 20101217
  Transmission Date: 20110411
  Serious: Yes (Hospitalization)
  Sender: FDA-Public Use
  Company Number: US-CELGENEUS-163-21880-10122588

PATIENT
  Sex: Female

DRUGS (7)
  1. REVLIMID [Suspect]
     Indication: MULTIPLE MYELOMA
     Route: 048
     Dates: start: 20100801
  2. REVLIMID [Suspect]
     Route: 048
     Dates: start: 20101115, end: 20101206
  3. MS CONTIN [Concomitant]
     Indication: PAIN
     Route: 065
     Dates: start: 20100909
  4. MORPHINE [Concomitant]
     Indication: PAIN
     Route: 065
     Dates: start: 20100909
  5. MIRALAX [Concomitant]
     Indication: CONSTIPATION
     Route: 065
     Dates: start: 20100813
  6. CELEXA [Concomitant]
     Indication: DEPRESSION
     Route: 065
  7. PHENERGAN [Concomitant]
     Indication: NAUSEA
     Route: 048
     Dates: start: 20100801

REACTIONS (8)
  - ANAEMIA [None]
  - DECUBITUS ULCER [None]
  - FALL [None]
  - NAUSEA [None]
  - NEUTROPENIA [None]
  - PATHOLOGICAL FRACTURE [None]
  - PYREXIA [None]
  - VOMITING [None]
